FAERS Safety Report 9258011 (Version 3)
Quarter: 2013Q3

REPORT INFORMATION
  Report Type: Report from Study
  Country: FR (occurrence: FR)
  Receive Date: 20130426
  Receipt Date: 20130829
  Transmission Date: 20140515
  Serious: Yes (Death, Hospitalization)
  Sender: FDA-Public Use
  Company Number: FR-BRISTOL-MYERS SQUIBB COMPANY-18826529

PATIENT
  Age: 71 Year
  Sex: Female

DRUGS (4)
  1. CETUXIMAB [Suspect]
     Indication: COLON CANCER
     Route: 042
     Dates: start: 20130405, end: 20130405
  2. OXALIPLATIN [Suspect]
     Indication: COLON CANCER
     Route: 042
     Dates: start: 20130405, end: 20130405
  3. FLUOROURACIL [Suspect]
     Indication: COLON CANCER
     Dosage: BOLUS 750MG,CONTINUOUS INFUSION 4450 MG
     Route: 042
     Dates: start: 20130405, end: 20130405
  4. FOLINIC ACID [Suspect]
     Indication: COLON CANCER
     Route: 042
     Dates: start: 20130405, end: 20130405

REACTIONS (1)
  - Septic shock [Fatal]
